FAERS Safety Report 6378464-6 (Version None)
Quarter: 2009Q3

REPORT INFORMATION
  Report Type: 
  Country: None (occurrence: None)
  Receive Date: 20090928
  Receipt Date: 20090922
  Transmission Date: 20100115
  Serious: No
  Sender: FDA-Public Use
  Company Number: US-BIOGENIDEC-2009BI022691

PATIENT
  Sex: Female

DRUGS (2)
  1. TYSABRI [Suspect]
     Indication: MULTIPLE SCLEROSIS
     Route: 042
     Dates: start: 20070925, end: 20090601
  2. MEDICINE (NOS) [Concomitant]
     Indication: MUSCLE TWITCHING

REACTIONS (2)
  - POLLAKIURIA [None]
  - SPINAL NERVE STIMULATOR IMPLANTATION [None]
